FAERS Safety Report 20057460 (Version 1)
Quarter: 2021Q4

REPORT INFORMATION
  Report Type: Spontaneous
  Country: US (occurrence: US)
  Receive Date: 20211111
  Receipt Date: 20211111
  Transmission Date: 20220303
  Serious: No
  Sender: FDA-Public Use
  Company Number: US-BEH-2021137678

PATIENT
  Sex: Female

DRUGS (2)
  1. HIZENTRA [Suspect]
     Active Substance: HUMAN IMMUNOGLOBULIN G
     Indication: Hypogammaglobulinaemia
     Dosage: 18 GRAM, QOW
     Route: 058
  2. LOESTRIN NOS [Concomitant]
     Active Substance: ETHINYL ESTRADIOL\NORETHINDRONE ACETATE
     Dosage: 1 MILLIGRAM

REACTIONS (6)
  - Pain [Recovered/Resolved]
  - Recalled product administered [Recovered/Resolved]
  - Fatigue [Recovered/Resolved]
  - Recalled product administered [Recovered/Resolved]
  - Headache [Recovered/Resolved]
  - Recalled product administered [Recovered/Resolved]
